FAERS Safety Report 15204205 (Version 2)
Quarter: 2019Q1

REPORT INFORMATION
  Report Type: Spontaneous
  Country: IT (occurrence: IT)
  Receive Date: 20180726
  Receipt Date: 20190328
  Transmission Date: 20190417
  Serious: Yes (Other)
  Sender: FDA-Public Use
  Company Number: IT-MYLANLABS-2018M1055050

PATIENT
  Age: 70 Year
  Sex: Male

DRUGS (7)
  1. AZATHIOPRINE. [Suspect]
     Active Substance: AZATHIOPRINE
     Indication: HYPERGAMMAGLOBULINAEMIA BENIGN MONOCLONAL
     Dosage: UNK
     Route: 065
  2. CYCLOPHOSPHAMIDE. [Suspect]
     Active Substance: CYCLOPHOSPHAMIDE
     Indication: HYPERGAMMAGLOBULINAEMIA BENIGN MONOCLONAL
     Dosage: UNK
     Route: 065
  3. RITUXIMAB. [Suspect]
     Active Substance: RITUXIMAB
     Indication: C3 GLOMERULOPATHY
     Dosage: UNK
     Route: 065
  4. METHYLPREDNISOLONE. [Concomitant]
     Active Substance: METHYLPREDNISOLONE
     Indication: C3 GLOMERULOPATHY
     Dosage: 1 G, UNK
     Route: 042
  5. MYCOPHENOLATE MOFETIL. [Suspect]
     Active Substance: MYCOPHENOLATE MOFETIL
     Indication: C3 GLOMERULOPATHY
     Dosage: 2 G, QD
     Route: 065
  6. DAPSONE. [Suspect]
     Active Substance: DAPSONE
     Indication: C3 GLOMERULOPATHY
     Dosage: UNK
     Route: 065
  7. CYCLOSPORINE. [Suspect]
     Active Substance: CYCLOSPORINE
     Indication: HYPERGAMMAGLOBULINAEMIA BENIGN MONOCLONAL
     Dosage: UNK
     Route: 065

REACTIONS (4)
  - Peripheral ischaemia [Unknown]
  - Product use in unapproved indication [Unknown]
  - Infection [Unknown]
  - Disease recurrence [Unknown]
